FAERS Safety Report 5198068-0 (Version None)
Quarter: 2007Q1

REPORT INFORMATION
  Report Type: 
  Country: None (occurrence: None)
  Receive Date: 20070104
  Receipt Date: 20061221
  Transmission Date: 20070707
  Serious: Yes (Hospitalization)
  Sender: FDA-Public Use
  Company Number: CA-ELI_LILLY_AND_COMPANY-CA200701000245

PATIENT
  Sex: Female

DRUGS (4)
  1. FORTEO [Suspect]
     Indication: OSTEOPOROSIS
     Dosage: 20 UG, DAILY (1/D)
     Route: 058
     Dates: start: 20051029
  2. MORPHINE [Concomitant]
  3. LOSEC [Concomitant]
  4. AMITRIPTYLINE HCL [Concomitant]

REACTIONS (4)
  - MALAISE [None]
  - NASOPHARYNGITIS [None]
  - PNEUMONIA [None]
  - URINARY TRACT INFECTION [None]
